FAERS Safety Report 23547493 (Version 1)
Quarter: 2024Q1

REPORT INFORMATION
  Report Type: Spontaneous
  Country: US (occurrence: US)
  Receive Date: 20240221
  Receipt Date: 20240221
  Transmission Date: 20240410
  Serious: Yes (Hospitalization, Other)
  Sender: FDA-Public Use
  Company Number: US-ALEMBIC PHARMACUETICALS LIMITED-2024SCAL000102

PATIENT

DRUGS (3)
  1. LITHIUM CARBONATE [Suspect]
     Active Substance: LITHIUM CARBONATE
     Indication: Bipolar disorder
     Dosage: 600 MILLIGRAM, QD
     Route: 065
  2. ZIPRASIDONE [Concomitant]
     Active Substance: ZIPRASIDONE
     Indication: Bipolar disorder
     Dosage: UNK
     Route: 065
  3. RISPERIDONE [Concomitant]
     Active Substance: RISPERIDONE
     Indication: Bipolar disorder
     Dosage: UNK
     Route: 065

REACTIONS (28)
  - Mania [Recovered/Resolved]
  - Hyperthyroidism [Recovered/Resolved]
  - Toxicity to various agents [Recovered/Resolved]
  - Agitation [Recovered/Resolved]
  - Delirium [Recovered/Resolved]
  - Confusional state [Recovered/Resolved]
  - Restlessness [Recovered/Resolved]
  - Aggression [Recovered/Resolved]
  - Skin warm [Recovered/Resolved]
  - Hyperhidrosis [Recovered/Resolved]
  - Dehydration [Recovered/Resolved]
  - Tachycardia [Recovered/Resolved]
  - Oedema peripheral [Recovered/Resolved]
  - White blood cell count increased [Recovered/Resolved]
  - Haemoglobin decreased [Recovered/Resolved]
  - Platelet count decreased [Recovered/Resolved]
  - Alanine aminotransferase increased [Recovered/Resolved]
  - Drug level increased [Recovered/Resolved]
  - Tri-iodothyronine free increased [Recovered/Resolved]
  - Blood thyroid stimulating hormone decreased [Recovered/Resolved]
  - Thyroxine free increased [Recovered/Resolved]
  - Tri-iodothyronine uptake increased [Recovered/Resolved]
  - Thyroglobulin increased [Recovered/Resolved]
  - Hallucinations, mixed [Recovered/Resolved]
  - Speech disorder [Recovered/Resolved]
  - Tachyphrenia [Recovered/Resolved]
  - Tremor [Recovered/Resolved]
  - Hyperreflexia [Recovered/Resolved]
